FAERS Safety Report 9441525 (Version 1)
Quarter: 2013Q3

REPORT INFORMATION
  Report Type: Spontaneous
  Country: US (occurrence: US)
  Receive Date: 20130805
  Receipt Date: 20130805
  Transmission Date: 20140515
  Serious: Yes (Hospitalization)
  Sender: FDA-Public Use
  Company Number: US-RB-052209-13

PATIENT
  Age: 62 Year
  Sex: Male

DRUGS (16)
  1. SUBOXONE FILM [Suspect]
     Indication: DRUG DEPENDENCE
     Dosage: SUBOXONE FILM
     Route: 060
     Dates: start: 201209
  2. SUBOXONE FILM [Suspect]
     Dosage: SUBOXONE FILM
     Route: 060
     Dates: end: 201304
  3. SUBOXONE FILM [Suspect]
     Dosage: SUBOXONE FILM
     Route: 060
     Dates: start: 201304, end: 20130609
  4. SUBOXONE FILM [Suspect]
     Dosage: SUBOXONE FILM
     Route: 060
     Dates: start: 20130610, end: 201306
  5. SUBOXONE FILM [Suspect]
     Dosage: SUBOXONE FILM
     Route: 060
     Dates: start: 201306, end: 201306
  6. SUBOXONE FILM [Suspect]
     Dosage: SUBOXONE FILM
     Route: 060
     Dates: start: 201306, end: 201306
  7. SUBOXONE FILM [Suspect]
     Dosage: SUBOXONE FILM
     Route: 060
     Dates: start: 201306, end: 201306
  8. SUBOXONE FILM [Suspect]
     Dosage: SUBOXONE FILM
     Route: 060
     Dates: start: 201306, end: 201306
  9. SUBOXONE FILM [Suspect]
     Dosage: SUBOXONE FILM
     Route: 060
     Dates: start: 201306, end: 20130617
  10. PROZAC [Concomitant]
     Indication: DEPRESSION
     Route: 048
     Dates: end: 201306
  11. AMBIEN [Concomitant]
     Indication: INSOMNIA
     Route: 048
     Dates: end: 201306
  12. LIPITOR [Concomitant]
     Indication: BLOOD CHOLESTEROL INCREASED
     Route: 048
  13. VISEROL [Concomitant]
     Indication: ANXIETY
     Route: 048
     Dates: start: 201306, end: 201306
  14. CLONODIN [Concomitant]
     Indication: ANXIETY
     Dosage: 1 MG ONE TO TWO TIMES A DAY
     Route: 048
     Dates: start: 201306, end: 201306
  15. ANTIDEPRESSANTS [Concomitant]
     Indication: DEPRESSION
     Dosage: DOSING DETAILS UNKNOWN
     Route: 065
     Dates: start: 1966
  16. MULTIVITAMIN [Concomitant]
     Indication: PRODUCT USED FOR UNKNOWN INDICATION
     Dosage: DOSING DETAILS UNKNOWN
     Route: 065

REACTIONS (15)
  - Hospitalisation [Recovered/Resolved]
  - Wrong technique in drug usage process [Recovered/Resolved]
  - Drug withdrawal syndrome [Recovering/Resolving]
  - Depression [Recovering/Resolving]
  - Anxiety [Recovering/Resolving]
  - Vomiting [Recovering/Resolving]
  - Cold sweat [Recovering/Resolving]
  - Diarrhoea [Recovering/Resolving]
  - Fatigue [Recovering/Resolving]
  - Disturbance in attention [Recovering/Resolving]
  - Insomnia [Recovering/Resolving]
  - Decreased appetite [Recovering/Resolving]
  - Hunger [Recovering/Resolving]
  - Yawning [Recovering/Resolving]
  - Nausea [Recovering/Resolving]
